FAERS Safety Report 9054535 (Version 1)
Quarter: 2013Q1

REPORT INFORMATION
  Report Type: Spontaneous
  Country: US (occurrence: US)
  Receive Date: 20130208
  Receipt Date: 20130208
  Transmission Date: 20140127
  Serious: Yes (Hospitalization)
  Sender: FDA-Public Use
  Company Number: US-JNJFOC-20130115741

PATIENT
  Sex: Male
  Weight: 81.65 kg

DRUGS (11)
  1. RISPERDAL [Suspect]
     Indication: SCHIZOPHRENIA
     Route: 065
     Dates: end: 201301
  2. RISPERDAL [Suspect]
     Indication: PSYCHOTIC DISORDER
     Route: 065
     Dates: end: 201301
  3. RISPERDAL [Suspect]
     Indication: BIPOLAR DISORDER
     Route: 065
     Dates: end: 201301
  4. INVEGA SUSTENNA [Suspect]
     Indication: SCHIZOPHRENIA
     Route: 030
     Dates: start: 201208, end: 201212
  5. INVEGA SUSTENNA [Suspect]
     Indication: PSYCHOTIC DISORDER
     Route: 030
     Dates: start: 201208, end: 201212
  6. INVEGA SUSTENNA [Suspect]
     Indication: BIPOLAR DISORDER
     Route: 030
     Dates: start: 201208, end: 201212
  7. LITHIUM [Suspect]
     Indication: SCHIZOPHRENIA
     Route: 065
     Dates: end: 201301
  8. LITHIUM [Suspect]
     Indication: PSYCHOTIC DISORDER
     Route: 065
     Dates: end: 201301
  9. LITHIUM [Suspect]
     Indication: BIPOLAR DISORDER
     Route: 065
     Dates: end: 201301
  10. COGENTIN [Suspect]
     Indication: PRODUCT USED FOR UNKNOWN INDICATION
     Route: 065
  11. CELEXA [Concomitant]
     Route: 065

REACTIONS (5)
  - Mental disorder [Recovered/Resolved]
  - Thyroid disorder [Unknown]
  - Weight decreased [Not Recovered/Not Resolved]
  - Hypertension [Unknown]
  - Cognitive disorder [Recovered/Resolved]
